FAERS Safety Report 6192641-9 (Version None)
Quarter: 2009Q2

REPORT INFORMATION
  Report Type: 
  Country: None (occurrence: None)
  Receive Date: 20090518
  Receipt Date: 20090421
  Transmission Date: 20091009
  Serious: No
  Sender: FDA-Public Use
  Company Number: US-JNJFOC-20090405460

PATIENT
  Sex: Female
  Weight: 56.25 kg

DRUGS (5)
  1. INVEGA [Suspect]
     Indication: SCHIZOPHRENIA
     Route: 048
  2. TRINESSA [Concomitant]
     Indication: CONTRACEPTION
  3. STRATTERA [Concomitant]
     Indication: ATTENTION DEFICIT/HYPERACTIVITY DISORDER
  4. CITALOPRAM HYDROBROMIDE [Concomitant]
  5. SEROQUEL [Concomitant]

REACTIONS (1)
  - VAGINAL HAEMORRHAGE [None]
